FAERS Safety Report 9127158 (Version 1)
Quarter: 2013Q1

REPORT INFORMATION
  Report Type: Spontaneous
  Country: FR (occurrence: FR)
  Receive Date: 20130228
  Receipt Date: 20130228
  Transmission Date: 20140127
  Serious: Yes (Life-Threatening, Other)
  Sender: FDA-Public Use
  Company Number: FR-PFIZER INC-2013067480

PATIENT
  Age: 51 Year
  Sex: Female

DRUGS (1)
  1. TRINORDIOL [Suspect]
     Dosage: UNK
     Route: 048
     Dates: end: 2005

REACTIONS (3)
  - Ischaemic stroke [Recovered/Resolved with Sequelae]
  - Pulmonary embolism [Recovered/Resolved with Sequelae]
  - Phlebitis [Recovered/Resolved with Sequelae]
